FAERS Safety Report 9357473 (Version 3)
Quarter: 2013Q4

REPORT INFORMATION
  Report Type: Spontaneous
  Country: JP (occurrence: JP)
  Receive Date: 20130620
  Receipt Date: 20131224
  Transmission Date: 20140711
  Serious: Yes (Hospitalization)
  Sender: FDA-Public Use
  Company Number: JP-ROCHE-1236898

PATIENT
  Age: 86 Year
  Sex: Male
  Weight: 53 kg

DRUGS (8)
  1. MIRCERA [Suspect]
     Indication: NEPHROGENIC ANAEMIA
     Dosage: DOSAGE IS UNCERTAIN.
     Route: 058
     Dates: start: 20120904, end: 20130429
  2. MIRCERA [Suspect]
     Route: 058
     Dates: start: 20130430
  3. MIRCERA [Suspect]
     Route: 058
     Dates: start: 20130528
  4. LAXOBERON [Concomitant]
     Indication: CONSTIPATION
     Route: 048
  5. OLMETEC [Concomitant]
     Indication: NEPHROSCLEROSIS
     Route: 048
  6. FUROSEMIDE [Concomitant]
     Indication: NEPHROSCLEROSIS
     Route: 048
  7. TAKEPRON [Concomitant]
     Indication: GASTROINTESTINAL DISORDER
     Route: 048
  8. KALIMATE [Concomitant]
     Indication: HYPERKALAEMIA
     Route: 048

REACTIONS (2)
  - Anti-erythropoietin antibody positive [Recovered/Resolved]
  - Aplasia pure red cell [Recovered/Resolved]
